FAERS Safety Report 6069692-8 (Version None)
Quarter: 2009Q1

REPORT INFORMATION
  Report Type: 
  Country: None (occurrence: None)
  Receive Date: 20090209
  Receipt Date: 20090202
  Transmission Date: 20090719
  Serious: Yes (Hospitalization, Other)
  Sender: FDA-Public Use
  Company Number: US-TEVA-184810USA

PATIENT
  Age: 30 Year
  Sex: Female

DRUGS (1)
  1. PROMETHAZINE HCL INJ [Suspect]

REACTIONS (1)
  - LIVER DISORDER [None]
